FAERS Safety Report 4842304-4 (Version None)
Quarter: 2005Q4

REPORT INFORMATION
  Report Type: 
  Country: None (occurrence: None)
  Receive Date: 20051129
  Receipt Date: 20051116
  Transmission Date: 20060501
  Serious: Yes (Hospitalization)
  Sender: FDA-Public Use
  Company Number: US200511000081

PATIENT
  Age: 55 Year

DRUGS (4)
  1. ZYPREXA [Suspect]
     Indication: SCHIZOPHRENIA
     Dosage: SEE IMAGE
     Dates: start: 20030101, end: 20050101
  2. ZYPREXA [Suspect]
     Indication: SCHIZOPHRENIA
     Dosage: SEE IMAGE
     Dates: start: 20050101
  3. DIOVAN ^CIBA-GEIGY^ (VALSARTAN) [Concomitant]
  4. ACTONEL [Concomitant]

REACTIONS (7)
  - AGGRESSION [None]
  - AGITATION [None]
  - DERMAL CYST [None]
  - PHYSICAL ASSAULT [None]
  - PRESCRIBED OVERDOSE [None]
  - SPINAL FUSION SURGERY [None]
  - ULCER HAEMORRHAGE [None]
